FAERS Safety Report 12141993 (Version 2)
Quarter: 2017Q4

REPORT INFORMATION
  Report Type: Report from Study
  Country: None (occurrence: BR)
  Receive Date: 20160303
  Receipt Date: 20171116
  Transmission Date: 20180320
  Serious: Yes (Other)
  Sender: FDA-Public Use
  Company Number: BR-ABBVIE-16K-020-1572888-00

PATIENT
  Sex: Female

DRUGS (2)
  1. HUMIRA [Suspect]
     Active Substance: ADALIMUMAB
     Indication: MATERNAL EXPOSURE TIMING UNSPECIFIED
     Route: 064
  2. HUMIRA [Suspect]
     Active Substance: ADALIMUMAB
     Route: 063

REACTIONS (3)
  - Exposure during breast feeding [Unknown]
  - Foetal exposure during pregnancy [Unknown]
  - Premature baby [Unknown]
